FAERS Safety Report 21495923 (Version 1)
Quarter: 2022Q4

REPORT INFORMATION
  Report Type: Spontaneous
  Country: GB (occurrence: GB)
  Receive Date: 20221022
  Receipt Date: 20221022
  Transmission Date: 20230112
  Serious: Yes (Other)
  Sender: FDA-Public Use
  Company Number: None

PATIENT
  Age: 72 Year
  Sex: Female

DRUGS (5)
  1. DOXYCYCLINE [Suspect]
     Active Substance: DOXYCYCLINE
     Indication: Product used for unknown indication
     Dosage: 2 TODAY, THEN ONE DAILY, UNIT DOSE : 100 MG, THERAPY END DATE : NASK
     Dates: start: 20220930
  2. ESTRADERM [Concomitant]
     Active Substance: ESTRADIOL
     Indication: Product used for unknown indication
     Dosage: UNIT DOSE :1 DF, FREQUENCY : 2 IN 1 WEEKS, MX 50
     Dates: start: 20220725
  3. POTASSIUM BICARBONATE\SODIUM ALGINATE [Concomitant]
     Active Substance: POTASSIUM BICARBONATE\SODIUM ALGINATE
     Indication: Product used for unknown indication
     Dosage: 5-10 ML, FREQUENCY : 3 IN 1 DAY
     Route: 048
     Dates: start: 20220725
  4. METRONIDAZOLE [Concomitant]
     Active Substance: METRONIDAZOLE
     Indication: Product used for unknown indication
     Dosage: 1200 MILLIGRAM DAILY;
     Dates: start: 20220923
  5. OXYBUTYNIN [Concomitant]
     Active Substance: OXYBUTYNIN
     Indication: Product used for unknown indication
     Dosage: 5 MILLIGRAM DAILY;
     Dates: start: 20220712

REACTIONS (4)
  - Drug hypersensitivity [Recovered/Resolved]
  - Vomiting [Unknown]
  - Mouth swelling [Unknown]
  - Swollen tongue [Unknown]

NARRATIVE: CASE EVENT DATE: 20220930
